FAERS Safety Report 4682725-6 (Version None)
Quarter: 2005Q2

REPORT INFORMATION
  Report Type: 
  Country: None (occurrence: None)
  Receive Date: 20050606
  Receipt Date: 20050412
  Transmission Date: 20051028
  Serious: Yes (Other)
  Sender: FDA-Public Use
  Company Number: PHBS2005BE05270

PATIENT
  Age: 58 Year
  Sex: Female

DRUGS (8)
  1. TAMOXIFEN [Concomitant]
     Route: 065
  2. ARIMIDEX [Concomitant]
     Route: 065
  3. RADIOTHERAPY [Concomitant]
     Dosage: 30 GY AT D7-D11 FOR 2 WEEKS
     Route: 065
     Dates: start: 20030113
  4. RADIOTHERAPY [Concomitant]
     Dosage: 30 GY AT LEFT HIP OVER 10 DAYS
     Route: 065
     Dates: start: 20050413
  5. AROMASIN [Concomitant]
     Dosage: UNK, UNK
     Route: 065
     Dates: start: 20040601, end: 20041101
  6. FASLODEX [Concomitant]
     Indication: METASTASES TO BONE MARROW
     Route: 065
     Dates: start: 20041101
  7. TAXOTERE [Concomitant]
     Route: 065
     Dates: start: 20050524
  8. ZOMETA [Suspect]
     Indication: METASTASES TO BONE
     Dosage: UNK, QMO
     Route: 042
     Dates: start: 20021205, end: 20050412

REACTIONS (14)
  - ABSCESS [None]
  - BONE DISORDER [None]
  - CARBOHYDRATE ANTIGEN 15-3 INCREASED [None]
  - EXCESSIVE GRANULATION TISSUE [None]
  - IMPAIRED HEALING [None]
  - INFECTION [None]
  - MALIGNANT NEOPLASM PROGRESSION [None]
  - METASTASES TO BONE [None]
  - METASTASES TO LIVER [None]
  - ORAL PAIN [None]
  - OSTEOMYELITIS [None]
  - OSTEONECROSIS [None]
  - PRIMARY SEQUESTRUM [None]
  - TOOTH EXTRACTION [None]
